FAERS Safety Report 23615333 (Version 1)
Quarter: 2024Q1

REPORT INFORMATION
  Report Type: Spontaneous
  Country: FR (occurrence: FR)
  Receive Date: 20240311
  Receipt Date: 20240311
  Transmission Date: 20240410
  Serious: Yes (Hospitalization, Other)
  Sender: FDA-Public Use
  Company Number: FR-Accord-408513

PATIENT
  Age: 30 Year
  Sex: Female

DRUGS (5)
  1. VORICONAZOLE [Suspect]
     Active Substance: VORICONAZOLE
     Indication: Pneumonia fungal
     Dosage: 550 MILLIGRAM, TWO TIMES A DAY  (550 MG BID FOR 4 DAYS, MIC 0.38 MICROG/ML)
     Route: 042
  2. VORICONAZOLE [Suspect]
     Active Substance: VORICONAZOLE
     Dosage: 200 MILLIGRAM, TWO TIMES A DAY (200 MG BID CONSIDERING THE MINIMALINHIBITORY CONCENTRATIONS (MIC))
     Route: 048
  3. VORICONAZOLE [Suspect]
     Active Substance: VORICONAZOLE
     Dosage: 160 MILLIGRAM, TWO TIMES A DAY
     Route: 065
  4. IMIPENEM [Suspect]
     Active Substance: IMIPENEM
     Indication: Pneumonia fungal
     Dosage: 1 GRAM, 3 TIMES A DAY
     Route: 065
  5. AMPHOTERICIN B [Concomitant]
     Active Substance: AMPHOTERICIN B
     Indication: Pneumonia fungal
     Dosage: 3 MILLIGRAM/KILOGRAM, DAILY (3 MG/KG/DAY)
     Route: 065

REACTIONS (1)
  - Posterior reversible encephalopathy syndrome [Unknown]
